FAERS Safety Report 7199354-5 (Version None)
Quarter: 2010Q4

REPORT INFORMATION
  Report Type: 
  Country: None (occurrence: None)
  Receive Date: 20101214
  Receipt Date: 20101129
  Transmission Date: 20110411
  Serious: Yes (Other)
  Sender: FDA-Public Use
  Company Number: CRC-10-217

PATIENT
  Age: 52 Year
  Sex: Female

DRUGS (2)
  1. ALENDRONATE SODIUM [Suspect]
     Dates: start: 20100201, end: 20100401
  2. ALENDRONATE SODIUM [Suspect]

REACTIONS (1)
  - MADAROSIS [None]
